FAERS Safety Report 4383755-4 (Version None)
Quarter: 2004Q2

REPORT INFORMATION
  Report Type: 
  Country: None (occurrence: None)
  Receive Date: 20040608
  Receipt Date: 20030711
  Transmission Date: 20050107
  Serious: Yes (Life-Threatening, Other)
  Sender: FDA-Public Use
  Company Number: 200312384BCC

PATIENT
  Age: 65 Year
  Sex: Female
  Weight: 65.7716 kg

DRUGS (1)
  1. ALEVE [Suspect]
     Indication: PAIN
     Dosage: 220 MG, ONCE, ORAL
     Route: 048
     Dates: end: 20030710

REACTIONS (6)
  - DIARRHOEA [None]
  - HYPERSENSITIVITY [None]
  - OEDEMA PERIPHERAL [None]
  - SWELLING [None]
  - THROAT TIGHTNESS [None]
  - VOMITING [None]
